FAERS Safety Report 5356731-2 (Version None)
Quarter: 2007Q2

REPORT INFORMATION
  Report Type: 
  Country: None (occurrence: None)
  Receive Date: 20070530
  Receipt Date: 20061218
  Transmission Date: 20071010
  Serious: Yes (Other)
  Sender: FDA-Public Use
  Company Number: US200608003763

PATIENT
  Age: 54 Year
  Sex: Male
  Weight: 79.4 kg

DRUGS (6)
  1. ZYPREXA [Suspect]
     Indication: DEPRESSION
     Dosage: 5 MG
     Dates: start: 20030801, end: 20060101
  2. CELEXA [Concomitant]
  3. XANAX [Concomitant]
  4. ALPRAZOLAM [Concomitant]
  5. TRILEPTAL [Concomitant]
  6. LAMICTAL [Concomitant]

REACTIONS (5)
  - DIABETES MELLITUS [None]
  - DIABETIC COMA [None]
  - DIABETIC KETOACIDOSIS [None]
  - HYPERGLYCAEMIA [None]
  - PANCREATITIS [None]
